FAERS Safety Report 16018122 (Version 1)
Quarter: 2019Q1

REPORT INFORMATION
  Report Type: Spontaneous
  Country: IL (occurrence: IL)
  Receive Date: 20190228
  Receipt Date: 20190228
  Transmission Date: 20190418
  Serious: Yes (Other)
  Sender: FDA-Public Use
  Company Number: IL-AMGEN-ISRSP2019029032

PATIENT
  Sex: Male
  Weight: 60 kg

DRUGS (2)
  1. NPLATE [Suspect]
     Active Substance: ROMIPLOSTIM
     Dosage: 4 MG/KG, UNK
     Route: 065
     Dates: start: 2019
  2. NPLATE [Suspect]
     Active Substance: ROMIPLOSTIM
     Indication: IMMUNE THROMBOCYTOPENIC PURPURA
     Dosage: 10 MG/KG, UNK
     Route: 065
     Dates: start: 2019

REACTIONS (1)
  - Platelet count decreased [Unknown]
